FAERS Safety Report 25331103 (Version 1)
Quarter: 2025Q2

REPORT INFORMATION
  Report Type: Spontaneous
  Country: DE (occurrence: DE)
  Receive Date: 20250519
  Receipt Date: 20250519
  Transmission Date: 20250716
  Serious: Yes (Other)
  Sender: NOVARTIS
  Company Number: DE-002147023-NVSC2025DE080000

PATIENT
  Sex: Male

DRUGS (1)
  1. MAYZENT [Suspect]
     Active Substance: SIPONIMOD
     Indication: Secondary progressive multiple sclerosis
     Dosage: 2 MG, QD
     Route: 065
     Dates: start: 202410

REACTIONS (2)
  - Pneumonia [Unknown]
  - Urinary tract infection [Unknown]
